FAERS Safety Report 9671719 (Version 1)
Quarter: 2013Q4

REPORT INFORMATION
  Report Type: Report from Study
  Country: US (occurrence: US)
  Receive Date: 20131106
  Receipt Date: 20131106
  Transmission Date: 20140711
  Serious: Yes (Other)
  Sender: FDA-Public Use
  Company Number: US-ACTELION-A-US2013-90468

PATIENT
  Age: 52 Year
  Sex: Male

DRUGS (4)
  1. TRACLEER [Suspect]
     Indication: PULMONARY ARTERIAL HYPERTENSION
     Dosage: UNK
     Route: 048
  2. TYVASO [Suspect]
  3. ADCIRCA [Concomitant]
  4. COUMADIN [Concomitant]

REACTIONS (2)
  - Pulmonary oedema [Unknown]
  - Pulmonary congestion [Unknown]
